FAERS Safety Report 6599138-2 (Version None)
Quarter: 2010Q1

REPORT INFORMATION
  Report Type: 
  Country: None (occurrence: None)
  Receive Date: 20100224
  Receipt Date: 20091215
  Transmission Date: 20100710
  Serious: No
  Sender: FDA-Public Use
  Company Number: US-BRISTOL-MYERS SQUIBB COMPANY-14895718

PATIENT
  Age: 62 Year
  Sex: Female
  Weight: 99 kg

DRUGS (4)
  1. GLUCOPHAGE XR [Suspect]
     Indication: DIABETES MELLITUS
     Dosage: INTERRUPTED ON 11DEC09. RESTARTED ON 15DEC09
     Dates: start: 20091001
  2. METFORMIN HCL [Suspect]
     Indication: DIABETES MELLITUS
     Dosage: DURATION: 3-4 YEARS. ON UNKNOWN DATE DOSE REDUCED TO 500 MG.
     Dates: start: 20050101
  3. ETODOLAC [Concomitant]
  4. CALCIUM [Concomitant]

REACTIONS (3)
  - BLOOD CHOLESTEROL INCREASED [None]
  - DIARRHOEA [None]
  - NAUSEA [None]
